FAERS Safety Report 7573324-7 (Version None)
Quarter: 2011Q2

REPORT INFORMATION
  Report Type: 
  Country: None (occurrence: None)
  Receive Date: 20110627
  Receipt Date: 20110615
  Transmission Date: 20111010
  Serious: Yes (Other)
  Sender: FDA-Public Use
  Company Number: PHEH2010US03410

PATIENT
  Sex: Female

DRUGS (4)
  1. AREDIA [Suspect]
     Dosage: UNK
  2. FEMARA [Concomitant]
  3. WELLBUTRIN [Concomitant]
  4. DEXAMETHASONE [Concomitant]

REACTIONS (11)
  - ANAEMIA [None]
  - ARTHRALGIA [None]
  - MYALGIA [None]
  - BLOOD GLUCOSE INCREASED [None]
  - PULMONARY CONGESTION [None]
  - OROPHARYNGEAL PAIN [None]
  - GROIN PAIN [None]
  - COUGH [None]
  - PNEUMONIA [None]
  - MALAISE [None]
  - BLOOD ALKALINE PHOSPHATASE INCREASED [None]
